FAERS Safety Report 5767017-6 (Version None)
Quarter: 2008Q2

REPORT INFORMATION
  Report Type: 
  Country: None (occurrence: None)
  Receive Date: 20080609
  Receipt Date: 20080602
  Transmission Date: 20081010
  Serious: Yes (Other)
  Sender: FDA-Public Use
  Company Number: 6043344

PATIENT
  Age: 41 Year
  Sex: Male

DRUGS (1)
  1. LODOZ (TABLET) (HYDROCHLOROTHIAZIDE, BISOPROLOL FUMARATE) [Suspect]
     Indication: HYPERTENSION
     Route: 048
     Dates: start: 20071001, end: 20080421

REACTIONS (1)
  - CUTANEOUS LUPUS ERYTHEMATOSUS [None]
